FAERS Safety Report 9687642 (Version 1)
Quarter: 2013Q4

REPORT INFORMATION
  Report Type: Spontaneous
  Country: FR (occurrence: None)
  Receive Date: 20131112
  Receipt Date: 20131112
  Transmission Date: 20140711
  Serious: Yes (Life-Threatening, Hospitalization, Other)
  Sender: FDA-Public Use
  Company Number: DSM-2013-00880

PATIENT
  Age: 66 Year
  Sex: Male

DRUGS (1)
  1. SEVIKAR (OLMESARTAN MEDOXOMIL, AMLODIPINE BESILATE) (TABLET) (OLMESARTAN MEDOXOMIL, AMLODIPINE BESILATE) [Suspect]
     Indication: HYPERTENSION
     Dosage: 1 IN 1 D
     Route: 048
     Dates: start: 20100507

REACTIONS (21)
  - Diarrhoea infectious [None]
  - Dehydration [None]
  - Asthenia [None]
  - Metabolic acidosis [None]
  - Renal failure [None]
  - Haemoglobin increased [None]
  - Haemoconcentration [None]
  - Abdominal distension [None]
  - Hypokalaemia [None]
  - Hypoproteinaemia [None]
  - Hypoalbuminaemia [None]
  - Hypocalcaemia [None]
  - Malabsorption [None]
  - Alanine aminotransferase increased [None]
  - Gastrointestinal mucosal disorder [None]
  - Oedema mucosal [None]
  - Weight decreased [None]
  - Duodenitis [None]
  - Gastritis [None]
  - Overgrowth bacterial [None]
  - Helicobacter infection [None]
